FAERS Safety Report 6741420-X (Version None)
Quarter: 2010Q2

REPORT INFORMATION
  Report Type: 
  Country: None (occurrence: None)
  Receive Date: 20100526
  Receipt Date: 20100514
  Transmission Date: 20101027
  Serious: Yes (Hospitalization)
  Sender: FDA-Public Use
  Company Number: US-BAYER-201015399NA

PATIENT
  Age: 70 Year
  Sex: Female

DRUGS (1)
  1. SOTALOL HCL [Suspect]
     Indication: ATRIAL FIBRILLATION
     Dosage: TOTAL DAILY DOSE: 80 MG
     Dates: start: 20090101, end: 20100101

REACTIONS (2)
  - ATRIAL FIBRILLATION [None]
  - FATIGUE [None]
